FAERS Safety Report 5309800-7 (Version None)
Quarter: 2007Q2

REPORT INFORMATION
  Report Type: 
  Country: None (occurrence: None)
  Receive Date: 20070427
  Receipt Date: 20060724
  Transmission Date: 20071010
  Serious: No
  Sender: FDA-Public Use
  Company Number: US-GLAXOSMITHKLINE-A0611437A

PATIENT
  Age: 81 Year
  Sex: Female
  Weight: 136.4 kg

DRUGS (9)
  1. ZOFRAN [Suspect]
     Indication: NAUSEA
     Dosage: 8MG PER DAY
     Route: 048
     Dates: start: 20060705, end: 20060706
  2. DARVOCET-N 100 [Concomitant]
  3. TORSEMIDE [Concomitant]
  4. BENAZEPRIL HYDROCHLORIDE [Concomitant]
  5. WARFARIN SODIUM [Concomitant]
  6. ATENOLOL [Concomitant]
  7. OMEPRAZOLE [Concomitant]
  8. LOVASTATIN [Concomitant]
  9. NOVOLIN 70/30 [Concomitant]

REACTIONS (3)
  - CHROMATURIA [None]
  - HAEMATURIA [None]
  - URINARY TRACT INFECTION [None]
